FAERS Safety Report 25981049 (Version 2)
Quarter: 2025Q4

REPORT INFORMATION
  Report Type: Spontaneous
  Country: US (occurrence: US)
  Receive Date: 20251030
  Receipt Date: 20251118
  Transmission Date: 20260118
  Serious: No
  Sender: ASTELLAS
  Company Number: US-ASTELLAS-2025-AER-058849

PATIENT
  Age: 86 Year
  Sex: Male

DRUGS (2)
  1. MYRBETRIQ [Suspect]
     Active Substance: MIRABEGRON
     Indication: Hypertonic bladder
     Route: 048
     Dates: start: 20251018, end: 202510
  2. MYRBETRIQ [Suspect]
     Active Substance: MIRABEGRON
     Dosage: DECIDED TO ONLY TAKE IT AT NIGHT
     Route: 048
     Dates: start: 2025

REACTIONS (1)
  - Pruritus [Recovered/Resolved]

NARRATIVE: CASE EVENT DATE: 20251106
